FAERS Safety Report 4615098-5 (Version None)
Quarter: 2005Q1

REPORT INFORMATION
  Report Type: 
  Country: None (occurrence: None)
  Receive Date: 20050315
  Receipt Date: 20050228
  Transmission Date: 20050727
  Serious: Yes (Hospitalization)
  Sender: FDA-Public Use
  Company Number: 8008727

PATIENT
  Age: 37 Year
  Sex: Male

DRUGS (6)
  1. KEPPRA [Suspect]
     Indication: GRAND MAL CONVULSION
     Dosage: PO
     Route: 048
     Dates: start: 20040901, end: 20041101
  2. KEPPRA [Suspect]
     Indication: GRAND MAL CONVULSION
     Dosage: 1500 MG 2/D PO
     Route: 048
     Dates: start: 20041101, end: 20050129
  3. KEPPRA [Suspect]
     Indication: GRAND MAL CONVULSION
     Dosage: 1500 MG 2/D PO
     Route: 048
     Dates: start: 20050222
  4. VALPROIC ACID [Concomitant]
  5. CARBAMAZEPINE [Concomitant]
  6. DILANTIN [Concomitant]

REACTIONS (7)
  - CONVULSION [None]
  - HEPATIC ENZYME INCREASED [None]
  - LOSS OF CONSCIOUSNESS [None]
  - PNEUMONIA ASPIRATION [None]
  - RESPIRATORY ARREST [None]
  - STATUS EPILEPTICUS [None]
  - VOMITING [None]
